FAERS Safety Report 9494008 (Version 1)
Quarter: 2013Q3

REPORT INFORMATION
  Report Type: Spontaneous
  Country: US (occurrence: None)
  Receive Date: 20130829
  Receipt Date: 20130829
  Transmission Date: 20140515
  Serious: No
  Sender: FDA-Public Use
  Company Number: None

PATIENT
  Age: 79 Year
  Sex: Female
  Weight: 66.68 kg

DRUGS (14)
  1. EXJADE [Suspect]
     Indication: IRON OVERLOAD
     Dosage: 125MG DAILY ORAL
     Route: 048
     Dates: start: 20130326, end: 20130723
  2. EXJADE 250MG NOVARTIS [Suspect]
     Indication: IRON OVERLOAD
     Dosage: 1250 MG DAILY ORAL
     Route: 048
     Dates: start: 20130326, end: 20130723
  3. ALBUTEROL NEB [Concomitant]
  4. TYLENOL [Concomitant]
  5. LASIX [Concomitant]
  6. TOPROL [Concomitant]
  7. ALPHAGAN [Concomitant]
  8. ADVAIR [Concomitant]
  9. COUMADIN [Concomitant]
  10. SINGULAIR [Concomitant]
  11. XALATAN [Concomitant]
  12. CITIRIZINE [Concomitant]
  13. ASFEPRO [Concomitant]
  14. SLEEP AID [Concomitant]

REACTIONS (2)
  - Mouth haemorrhage [None]
  - Pharyngeal haemorrhage [None]
